FAERS Safety Report 7940017-3 (Version None)
Quarter: 2011Q4

REPORT INFORMATION
  Report Type: 
  Country: None (occurrence: None)
  Receive Date: 20111125
  Receipt Date: 20111123
  Transmission Date: 20120403
  Serious: No
  Sender: FDA-Public Use
  Company Number: US-PFIZER INC-2011276981

PATIENT
  Sex: Female
  Weight: 62.585 kg

DRUGS (3)
  1. NARDIL [Suspect]
     Indication: ANTIDEPRESSANT THERAPY
     Dosage: 15 MG, 2X/DAY
     Route: 048
  2. PROPRANOLOL [Concomitant]
     Dosage: UNK
  3. NARDIL [Suspect]
     Dosage: UNK
     Route: 048

REACTIONS (8)
  - WEIGHT DECREASED [None]
  - DRUG INEFFECTIVE [None]
  - DISTURBANCE IN ATTENTION [None]
  - DECREASED APPETITE [None]
  - FATIGUE [None]
  - FEELING ABNORMAL [None]
  - NAUSEA [None]
  - DIZZINESS [None]
